FAERS Safety Report 7051599-0 (Version None)
Quarter: 2010Q4

REPORT INFORMATION
  Report Type: 
  Country: None (occurrence: None)
  Receive Date: 20101018
  Receipt Date: 20101018
  Transmission Date: 20110411
  Serious: Yes (Other)
  Sender: FDA-Public Use
  Company Number: None

PATIENT
  Age: 39 Year
  Sex: Male

DRUGS (1)
  1. OXYBUTYNIN [Suspect]
     Indication: BLADDER SPASM
     Dosage: 10 MG ER TAB BID PO
     Route: 048
     Dates: start: 20100820, end: 20101015

REACTIONS (4)
  - BLADDER SPASM [None]
  - FEELING ABNORMAL [None]
  - MEDICATION RESIDUE [None]
  - PRODUCT SUBSTITUTION ISSUE [None]
